FAERS Safety Report 9732741 (Version 1)
Quarter: 2013Q4

REPORT INFORMATION
  Report Type: Spontaneous
  Country: BR (occurrence: BR)
  Receive Date: 20131204
  Receipt Date: 20131204
  Transmission Date: 20140711
  Serious: Yes (Other)
  Sender: FDA-Public Use
  Company Number: BR-GLAXOSMITHKLINE-A1051937A

PATIENT
  Age: 75 Year
  Sex: Female
  Weight: 54 kg

DRUGS (1)
  1. SERETIDE [Suspect]
     Indication: PRODUCT USED FOR UNKNOWN INDICATION
     Dates: start: 2003

REACTIONS (1)
  - Cerebrovascular accident [Not Recovered/Not Resolved]
